FAERS Safety Report 8953866 (Version 1)
Quarter: 2012Q4

REPORT INFORMATION
  Report Type: 
  Country: US (occurrence: US)
  Receive Date: 20121206
  Receipt Date: 20121206
  Transmission Date: 20130627
  Serious: Yes (Other)
  Sender: FDA-Public Use
  Company Number: CHPA2012US024104

PATIENT
  Sex: Male

DRUGS (2)
  1. EXCEDRIN EXTRA STRENGTH [Suspect]
     Indication: HEADACHE
     Dosage: 2 pills at a time, Unk
     Route: 048
     Dates: end: 201201
  2. AVALIDE [Concomitant]
     Indication: BLOOD PRESSURE

REACTIONS (4)
  - Dysuria [Recovered/Resolved]
  - Gastrooesophageal reflux disease [Unknown]
  - Headache [Not Recovered/Not Resolved]
  - Wrong technique in drug usage process [Unknown]
